FAERS Safety Report 6462575-0 (Version None)
Quarter: 2009Q4

REPORT INFORMATION
  Report Type: 
  Country: None (occurrence: None)
  Receive Date: 20091130
  Receipt Date: 20091118
  Transmission Date: 20100525
  Serious: Yes (Life-Threatening, Other)
  Sender: FDA-Public Use
  Company Number: US-BAYER-200916818BCC

PATIENT
  Age: 29 Year
  Sex: Male
  Weight: 70 kg

DRUGS (5)
  1. BRONKAID DUAL ACTION [Suspect]
     Indication: BODY FAT DISORDER
     Dosage: THE FATHER REPORTED THAT HIS SON TOOK BETWEEN 600 MG TO 1000 MG OF EPHEDRINE
     Route: 048
     Dates: start: 19970101, end: 20081001
  2. BRONKAID DUAL ACTION [Suspect]
     Dosage: CONSUMER TOOK BEFORE WORKING OUT
  3. PRIMATINE [Concomitant]
     Dosage: THE LAST 1 AND A HALF YEARS
     Route: 065
  4. EPHEDRINE [Concomitant]
     Dosage: EPHEDRINE MINI THINS
     Route: 065
  5. ALCOHOL [Concomitant]
     Dosage: VODKA THE LAST 1 AND A HALF YEARS
     Route: 048

REACTIONS (7)
  - CEREBROVASCULAR ACCIDENT [None]
  - HYPERSOMNIA [None]
  - LETHARGY [None]
  - NERVOUSNESS [None]
  - PARAESTHESIA [None]
  - PSYCHOMOTOR HYPERACTIVITY [None]
  - UNEVALUABLE EVENT [None]
